FAERS Safety Report 7130792-2 (Version None)
Quarter: 2010Q4

REPORT INFORMATION
  Report Type: 
  Country: None (occurrence: None)
  Receive Date: 20101201
  Receipt Date: 20101118
  Transmission Date: 20110411
  Serious: Yes (Hospitalization)
  Sender: FDA-Public Use
  Company Number: PHHY2010TW48251

PATIENT
  Sex: Female

DRUGS (1)
  1. GLIVEC [Suspect]
     Indication: GASTROINTESTINAL STROMAL TUMOUR
     Dosage: 600 MG, UNK
     Route: 048
     Dates: start: 20080310

REACTIONS (4)
  - ANAL HAEMORRHAGE [None]
  - BACK PAIN [None]
  - FAECES DISCOLOURED [None]
  - GINGIVAL SWELLING [None]
